FAERS Safety Report 8298143-8 (Version None)
Quarter: 2012Q2

REPORT INFORMATION
  Report Type: 
  Country: None (occurrence: None)
  Receive Date: 20120419
  Receipt Date: 20120411
  Transmission Date: 20120825
  Serious: Yes (Other)
  Sender: FDA-Public Use
  Company Number: US-US-EMD SERONO, INC.-7125877

PATIENT
  Sex: Male

DRUGS (1)
  1. REBIF [Suspect]
     Indication: PRODUCT USED FOR UNKNOWN INDICATION
     Route: 058
     Dates: start: 20111011

REACTIONS (4)
  - CONSTIPATION [None]
  - INFECTIOUS MONONUCLEOSIS [None]
  - FATIGUE [None]
  - INFLUENZA LIKE ILLNESS [None]
